FAERS Safety Report 24565023 (Version 1)
Quarter: 2024Q4

REPORT INFORMATION
  Report Type: Spontaneous
  Country: GB (occurrence: GB)
  Receive Date: 20241030
  Receipt Date: 20241030
  Transmission Date: 20250114
  Serious: Yes (Other)
  Sender: BAXTER
  Company Number: None

PATIENT
  Sex: Female

DRUGS (1)
  1. FUROSEMIDE [Suspect]
     Active Substance: FUROSEMIDE
     Indication: Adverse drug reaction
     Dosage: DOSE FORM: SOLUTION FOR INJECTION, UNSPECIFIED DOSE AND FREQUENCY
     Route: 065

REACTIONS (1)
  - Renal pain [Recovering/Resolving]

NARRATIVE: CASE EVENT DATE: 20241024
